FAERS Safety Report 6905850-5 (Version None)
Quarter: 2010Q3

REPORT INFORMATION
  Report Type: 
  Country: None (occurrence: None)
  Receive Date: 20100804
  Receipt Date: 20100209
  Transmission Date: 20110219
  Serious: Yes (Life-Threatening, Hospitalization)
  Sender: FDA-Public Use
  Company Number: US-SANOFI-AVENTIS-2010SA007647

PATIENT
  Age: 69 Year
  Sex: Male
  Weight: 64.5 kg

DRUGS (11)
  1. DOCETAXEL [Suspect]
     Indication: PROSTATE CANCER
     Route: 041
     Dates: start: 20100202, end: 20100202
  2. ELIGARD [Suspect]
     Indication: PROSTATE CANCER
     Dates: start: 20100202, end: 20100202
  3. CASODEX [Suspect]
     Indication: PROSTATE CANCER
     Dates: start: 20100202, end: 20100206
  4. CASODEX [Suspect]
     Dates: start: 20100207, end: 20100210
  5. FISH OIL [Concomitant]
     Route: 048
     Dates: start: 20030101
  6. MULTI-VITAMINS [Concomitant]
     Route: 048
     Dates: start: 20030101
  7. ZINC [Concomitant]
     Route: 048
     Dates: start: 20030101
  8. VITAMIN D [Concomitant]
     Indication: VITAMIN SUPPLEMENTATION
     Route: 048
     Dates: start: 20030101
  9. COSOPT [Concomitant]
     Indication: GLAUCOMA
     Route: 047
     Dates: start: 20000101
  10. ALPHAGAN [Concomitant]
     Indication: GLAUCOMA
     Route: 047
     Dates: start: 20000101
  11. LUMIGAN [Concomitant]
     Indication: GLAUCOMA
     Dates: start: 20000101

REACTIONS (2)
  - FEBRILE NEUTROPENIA [None]
  - LOSS OF CONSCIOUSNESS [None]
